FAERS Safety Report 10169907 (Version 2)
Quarter: 2014Q2

REPORT INFORMATION
  Report Type: Report from Study
  Country: BO (occurrence: BO)
  Receive Date: 20140513
  Receipt Date: 20140513
  Transmission Date: 20141212
  Serious: Yes (Other)
  Sender: FDA-Public Use
  Company Number: PHHY2013BO010565

PATIENT
  Sex: Male

DRUGS (3)
  1. GLIVEC [Suspect]
     Indication: CHRONIC MYELOID LEUKAEMIA
     Dosage: 400 MG, QD
     Route: 048
     Dates: start: 201203
  2. GLIVEC [Suspect]
     Dosage: 300 MG, DAILY
     Route: 048
  3. GLIVEC [Suspect]
     Dosage: 300 MG, DAILY
     Dates: start: 20140323

REACTIONS (4)
  - Transaminases increased [Recovering/Resolving]
  - Hepatic steatosis [Recovering/Resolving]
  - Blood cholesterol increased [Recovering/Resolving]
  - Blood triglycerides increased [Recovering/Resolving]
